FAERS Safety Report 5920427-6 (Version None)
Quarter: 2008Q4

REPORT INFORMATION
  Report Type: 
  Country: None (occurrence: None)
  Receive Date: 20081016
  Receipt Date: 20081014
  Transmission Date: 20090506
  Serious: Yes (Hospitalization)
  Sender: FDA-Public Use
  Company Number: AU-BRISTOL-MYERS SQUIBB COMPANY-14339055

PATIENT
  Age: 50 Year
  Sex: Female

DRUGS (6)
  1. ABATACEPT [Suspect]
     Indication: RHEUMATOID ARTHRITIS
     Dosage: THERAPYDATES:06DEC06-07NOV07,05DEC07-CONT.
     Route: 042
     Dates: start: 20071205
  2. METHOTREXATE [Concomitant]
     Dates: start: 20020228
  3. FOLIC ACID [Concomitant]
     Dates: start: 20061208
  4. CARBAMAZEPINE [Concomitant]
     Dosage: RESTARTED ON 16SEP08-400MG;18SEP08-800MG;25SEP08-CONTI;800MG ORAL
     Route: 048
     Dates: start: 19941001, end: 20080914
  5. LAMICTAL [Concomitant]
     Dosage: 15SEP08-400MG;ORAL
     Route: 048
     Dates: start: 19941001, end: 20080914
  6. NICOPATCH [Concomitant]
     Route: 061
     Dates: start: 20080914

REACTIONS (1)
  - CONVULSION [None]
